FAERS Safety Report 4323284-7 (Version None)
Quarter: 2004Q1

REPORT INFORMATION
  Report Type: 
  Country: None (occurrence: None)
  Receive Date: 20040322
  Receipt Date: 20040305
  Transmission Date: 20041129
  Serious: Yes (Other)
  Sender: FDA-Public Use
  Company Number: S04-FRA-01008-01

PATIENT
  Age: 65 Year
  Sex: Male

DRUGS (4)
  1. SEROPRAM (CITALOPRAM HYDROBROMIDE) [Suspect]
     Dosage: 20 MG QD PO
     Route: 048
  2. SEROPRAM (CITALOPRAM HYDROBROMIDE) [Suspect]
     Dosage: 10 MG QD PO
     Route: 048
  3. PREVISCAN (FLUINDIONE) [Suspect]
     Indication: ATRIAL FIBRILLATION
     Dosage: 1 TABLET Q PO
     Route: 048
  4. TAMOXIFEN CITRATE [Concomitant]

REACTIONS (3)
  - DRUG INTERACTION [None]
  - INTERNATIONAL NORMALISED RATIO INCREASED [None]
  - PROTHROMBIN LEVEL DECREASED [None]
